FAERS Safety Report 18209169 (Version 1)
Quarter: 2020Q3

REPORT INFORMATION
  Report Type: Other
  Country: US (occurrence: US)
  Receive Date: 20200828
  Receipt Date: 20200828
  Transmission Date: 20201103
  Serious: Yes (Life-Threatening, Other)
  Sender: FDA-Public Use
  Company Number: US-C B FLEET CO INC-202008-US-002893

PATIENT
  Age: 33 Week
  Sex: Male

DRUGS (2)
  1. BC ARTHRITIS [Suspect]
     Active Substance: ASPIRIN\CAFFEINE
     Indication: FOETAL EXPOSURE DURING PREGNANCY
     Dosage: MOTHER TOOK AN UNKNOWN AMOUNT THE MONTH PRIOR OF BC ARTHRITIS (1000MG ASA/ 65MG CAF)
     Route: 015
  2. CORTICOSTEROIDS [Concomitant]
     Active Substance: CORTICOSTEROID NOS

REACTIONS (4)
  - Right ventricular hypertrophy [Recovered/Resolved]
  - Foetal exposure during pregnancy [None]
  - Ductus arteriosus stenosis foetal [Recovered/Resolved]
  - Tricuspid valve incompetence [Recovered/Resolved]
